FAERS Safety Report 20980996 (Version 1)
Quarter: 2022Q2

REPORT INFORMATION
  Report Type: Report from Study
  Country: GB (occurrence: GB)
  Receive Date: 20220620
  Receipt Date: 20220620
  Transmission Date: 20220721
  Serious: Yes (Other)
  Sender: FDA-Public Use
  Company Number: GB-GUERBET-GB-20220067

PATIENT
  Age: 24 Year
  Sex: Male

DRUGS (10)
  1. LIPIODOL ULTRA-FLUIDE [Suspect]
     Active Substance: ETHIODIZED OIL
     Indication: Therapeutic embolisation
     Dosage: LIPIODOL IN MIXTURE WITH GLUBRAN 2 (EQUAL PARTS)
     Route: 013
  2. LIPIODOL ULTRA-FLUIDE [Suspect]
     Active Substance: ETHIODIZED OIL
     Dosage: LIPIODOL IN MIXTURE WITH GLUBRAN 2
     Route: 013
  3. LIPIODOL ULTRA-FLUIDE [Suspect]
     Active Substance: ETHIODIZED OIL
     Dosage: LIPIODOL IN MIXTURE WITH GLUBRAN 2
     Route: 013
  4. LIPIODOL ULTRA-FLUIDE [Suspect]
     Active Substance: ETHIODIZED OIL
     Dosage: LIPIODOL IN MIXTURE WITH GLUBRAN 2
     Route: 013
  5. LIPIODOL ULTRA-FLUIDE [Suspect]
     Active Substance: ETHIODIZED OIL
     Dosage: LIPIODOL IN MIXTURE WITH GLUBRAN 2
     Route: 013
  6. LIPIODOL ULTRA-FLUIDE [Suspect]
     Active Substance: ETHIODIZED OIL
     Dosage: LIPIODOL IN MIXTURE WITH GLUBRAN 2
     Route: 013
  7. LIPIODOL ULTRA-FLUIDE [Suspect]
     Active Substance: ETHIODIZED OIL
     Dosage: LIPIODOL IN MIXTURE WITH GLUBRAN 2
     Route: 013
  8. ADREKAR [Concomitant]
     Indication: Therapeutic embolisation
     Route: 040
  9. DEXTROSE [Concomitant]
     Active Substance: DEXTROSE
     Indication: Catheter management
     Dosage: 5% GLUCOSE SOLUTION
     Route: 065
  10. IOMEPROL [Concomitant]
     Active Substance: IOMEPROL
     Indication: Product used for unknown indication
     Dosage: 0.3 TO 0.5 ML
     Route: 065

REACTIONS (2)
  - Hemiparesis [Recovering/Resolving]
  - Product use in unapproved indication [Recovering/Resolving]
